FAERS Safety Report 20778586 (Version 1)
Quarter: 2022Q2

REPORT INFORMATION
  Report Type: Spontaneous
  Country: US (occurrence: US)
  Receive Date: 20220503
  Receipt Date: 20220503
  Transmission Date: 20220721
  Serious: Yes (Other)
  Sender: FDA-Public Use
  Company Number: US-RECORDATI RARE DISEASE INC.-2022001725

PATIENT
  Age: 3 Year
  Sex: Male

DRUGS (5)
  1. DACTINOMYCIN [Suspect]
     Active Substance: DACTINOMYCIN
     Indication: Nephroblastoma
     Dosage: 60 MICROGRAM/KILOGRAM ON WEEKS 0-60
     Route: 042
  2. VINCRISTINE [Suspect]
     Active Substance: VINCRISTINE
     Indication: Nephroblastoma
     Dosage: 1.5 MILLIGRAM/SQ. METER ON WEEKS 1-10
     Route: 042
  3. VINCRISTINE [Suspect]
     Active Substance: VINCRISTINE
     Dosage: 2 MILLIGRAM/SQ. METER ON WEEKS 12-60
     Route: 042
  4. ENFLURANE [Concomitant]
     Active Substance: ENFLURANE
     Indication: Anaesthesia
     Route: 065
  5. HALOTHANE [Concomitant]
     Active Substance: HALOTHANE
     Indication: Anaesthesia

REACTIONS (4)
  - Acute respiratory distress syndrome [Unknown]
  - Ascites [Unknown]
  - Pleural effusion [Unknown]
  - Overdose [Unknown]
